FAERS Safety Report 6706265-5 (Version None)
Quarter: 2010Q2

REPORT INFORMATION
  Report Type: 
  Country: None (occurrence: None)
  Receive Date: 20100503
  Receipt Date: 20100428
  Transmission Date: 20101027
  Serious: Yes (Hospitalization, Other)
  Sender: FDA-Public Use
  Company Number: CA-SANOFI-AVENTIS-2009SA010788

PATIENT
  Age: 56 Year
  Sex: Male

DRUGS (6)
  1. OXALIPLATIN [Suspect]
  2. BEVACIZUMAB [Suspect]
     Route: 042
     Dates: start: 20080429, end: 20080429
  3. BEVACIZUMAB [Suspect]
     Route: 042
     Dates: start: 20080502, end: 20080502
  4. FLUOROURACIL [Suspect]
     Route: 065
  5. ERLOTINIB HYDROCHLORIDE [Suspect]
     Route: 065
  6. DILAUDID [Concomitant]

REACTIONS (2)
  - ARTERIOSPASM CORONARY [None]
  - LEFT VENTRICULAR DYSFUNCTION [None]
